FAERS Safety Report 5870469-4 (Version None)
Quarter: 2008Q3

REPORT INFORMATION
  Report Type: 
  Country: None (occurrence: None)
  Receive Date: 20080904
  Receipt Date: 20080506
  Transmission Date: 20090109
  Serious: No
  Sender: FDA-Public Use
  Company Number: US-BRISTOL-MYERS SQUIBB COMPANY-13960323

PATIENT
  Age: 53 Year
  Sex: Male
  Weight: 89 kg

DRUGS (3)
  1. DEFINITY [Suspect]
     Indication: ECHOCARDIOGRAM
     Dosage: 1 DOSAGE FORM=2ML OF (3 ML OF 1.3 ML DILUTED WITH 8.7 ML SALINE)
     Route: 042
     Dates: start: 20071029, end: 20071029
  2. LUNESTA [Concomitant]
  3. PRILOSEC [Concomitant]

REACTIONS (2)
  - FLUSHING [None]
  - THROAT TIGHTNESS [None]
